FAERS Safety Report 4845090-7 (Version None)
Quarter: 2005Q4

REPORT INFORMATION
  Report Type: 
  Country: None (occurrence: None)
  Receive Date: 20051115
  Receipt Date: 20050913
  Transmission Date: 20060501
  Serious: Yes (Other)
  Sender: FDA-Public Use
  Company Number: 417763

PATIENT
  Age: 59 Year
  Sex: Female
  Weight: 55.3 kg

DRUGS (2)
  1. PEGASYS [Suspect]
     Indication: HEPATITIS C VIRUS
     Dosage: 180 MCG 1 PER WEEK SUBCUTANEOUS
     Route: 058
     Dates: start: 20050506, end: 20050907
  2. COPEGUS [Suspect]
     Indication: HEPATITIS C VIRUS
     Dosage: 1000 MG DAILY ORAL
     Route: 048
     Dates: start: 20050506, end: 20050907

REACTIONS (1)
  - PLATELET COUNT DECREASED [None]
